FAERS Safety Report 4350924-9 (Version None)
Quarter: 2004Q2

REPORT INFORMATION
  Report Type: 
  Country: None (occurrence: None)
  Receive Date: 20040430
  Receipt Date: 20031029
  Transmission Date: 20050107
  Serious: Yes (Death)
  Sender: FDA-Public Use
  Company Number: US-GLAXOSMITHKLINE-B0313897A

PATIENT
  Age: 30 Year
  Sex: Male

DRUGS (5)
  1. WELLBUTRIN SR [Suspect]
     Route: 048
  2. ZOLPIDEM [Suspect]
     Route: 048
  3. ETHANOL [Suspect]
     Route: 048
  4. TETRAHYDROCANNABINOL [Concomitant]
  5. AMPHETAMINES [Concomitant]

REACTIONS (12)
  - AGGRESSION [None]
  - ASPIRATION [None]
  - BLOOD ALCOHOL INCREASED [None]
  - CARDIO-RESPIRATORY ARREST [None]
  - COMA [None]
  - COMPLETED SUICIDE [None]
  - DEPRESSED LEVEL OF CONSCIOUSNESS [None]
  - FOREIGN BODY ASPIRATION [None]
  - HYPOTENSION [None]
  - OXYGEN SATURATION DECREASED [None]
  - SEDATION [None]
  - TOXICOLOGIC TEST ABNORMAL [None]
